FAERS Safety Report 5834733-7 (Version None)
Quarter: 2008Q3

REPORT INFORMATION
  Report Type: 
  Country: None (occurrence: None)
  Receive Date: 20080801
  Receipt Date: 20080722
  Transmission Date: 20090109
  Serious: Yes (Hospitalization)
  Sender: FDA-Public Use
  Company Number: SPV1-2008-01402

PATIENT
  Age: 65 Year
  Sex: Female
  Weight: 65 kg

DRUGS (7)
  1. FOSRENOL [Suspect]
     Dosage: 750 MG, 3X/DAY:TID; UNK
     Dates: start: 20070704, end: 20080526
  2. PRAVASTATIN [Concomitant]
  3. CALCITRIOL [Concomitant]
  4. CLONAZEPAM [Concomitant]
  5. FUROSEMIDE [Concomitant]
  6. GABAPENTIN [Concomitant]
  7. LEVOTHYROXINE SODIUM [Concomitant]

REACTIONS (12)
  - ABDOMINAL PAIN [None]
  - ASTHENIA [None]
  - CHOLECYSTITIS [None]
  - DYSSTASIA [None]
  - ELECTROCARDIOGRAM ABNORMAL [None]
  - FALL [None]
  - HEPATIC FUNCTION ABNORMAL [None]
  - INFLAMMATION [None]
  - MYOSITIS [None]
  - RHABDOMYOLYSIS [None]
  - TROPONIN T INCREASED [None]
  - WEIGHT DECREASED [None]
